FAERS Safety Report 5708383-7 (Version None)
Quarter: 2008Q2

REPORT INFORMATION
  Report Type: 
  Country: None (occurrence: None)
  Receive Date: 20080414
  Receipt Date: 20080304
  Transmission Date: 20081010
  Serious: Yes (Hospitalization)
  Sender: FDA-Public Use
  Company Number: 2002IC000095

PATIENT
  Age: 43 Year
  Sex: Male

DRUGS (6)
  1. ANCOTIL            (FLUCYTOSINE) [Suspect]
     Indication: OESOPHAGEAL CANDIDIASIS
     Dosage: 2.5 MG;IV
     Route: 042
     Dates: start: 20020107, end: 20020113
  2. ACYCLOVIR [Concomitant]
  3. AMBISOME [Concomitant]
  4. CASPOFUNGIN ACETATE [Concomitant]
  5. TENOFOVIR DISOPROXIL FUMARATE [Concomitant]
  6. BACTRIM DS [Concomitant]

REACTIONS (2)
  - BLOOD CREATININE INCREASED [None]
  - PANCREATITIS ACUTE [None]
